FAERS Safety Report 18305973 (Version 3)
Quarter: 2021Q1

REPORT INFORMATION
  Report Type: Spontaneous
  Country: US (occurrence: US)
  Receive Date: 20200924
  Receipt Date: 20210108
  Transmission Date: 20210419
  Serious: Yes (Life-Threatening, Hospitalization, Other)
  Sender: FDA-Public Use
  Company Number: US-DRREDDYS-USA/USA/20/0127217

PATIENT
  Age: 37 Year
  Sex: Male

DRUGS (11)
  1. CYCLOPHOSPHAMIDE. [Concomitant]
     Active Substance: CYCLOPHOSPHAMIDE
     Indication: HUMAN T-CELL LYMPHOTROPIC VIRUS INFECTION
  2. DOXORUBICIN HYDROCHLORIDE LIPOSOME INJECTION 20 MG/10 ML (2 MG/ML) AND [Suspect]
     Active Substance: DOXORUBICIN HYDROCHLORIDE
     Indication: HUMAN T-CELL LYMPHOTROPIC VIRUS INFECTION
     Dosage: SINGLE DOSE
     Route: 065
  3. ETOPOSIDE. [Concomitant]
     Active Substance: ETOPOSIDE
     Indication: HUMAN T-CELL LYMPHOTROPIC VIRUS INFECTION
     Dosage: INFUSION
  4. CYCLOPHOSPHAMIDE. [Concomitant]
     Active Substance: CYCLOPHOSPHAMIDE
     Indication: ADULT T-CELL LYMPHOMA/LEUKAEMIA
     Dosage: INFUSION
  5. VINCRISTINE [Concomitant]
     Active Substance: VINCRISTINE
     Indication: HUMAN T-CELL LYMPHOTROPIC VIRUS INFECTION
     Dosage: INFUSION
  6. DOXORUBICIN HYDROCHLORIDE LIPOSOME INJECTION 20 MG/10 ML (2 MG/ML) AND [Suspect]
     Active Substance: DOXORUBICIN HYDROCHLORIDE
     Indication: ADULT T-CELL LYMPHOMA/LEUKAEMIA
  7. VINCRISTINE [Concomitant]
     Active Substance: VINCRISTINE
     Indication: ADULT T-CELL LYMPHOMA/LEUKAEMIA
  8. RALTEGRAVIR. [Concomitant]
     Active Substance: RALTEGRAVIR
     Indication: HUMAN T-CELL LYMPHOTROPIC VIRUS INFECTION
  9. PREDNISONE. [Concomitant]
     Active Substance: PREDNISONE
     Indication: ADULT T-CELL LYMPHOMA/LEUKAEMIA
     Dosage: INFUSION
  10. PREDNISONE. [Concomitant]
     Active Substance: PREDNISONE
     Indication: HUMAN T-CELL LYMPHOTROPIC VIRUS INFECTION
  11. ETOPOSIDE. [Concomitant]
     Active Substance: ETOPOSIDE
     Indication: ADULT T-CELL LYMPHOMA/LEUKAEMIA

REACTIONS (4)
  - Electrocardiogram T wave inversion [Recovered/Resolved]
  - Mitral valve incompetence [Recovered/Resolved]
  - Cardiotoxicity [Recovered/Resolved]
  - Cardiomyopathy acute [Recovered/Resolved]
